FAERS Safety Report 5811620-1 (Version None)
Quarter: 2008Q3

REPORT INFORMATION
  Report Type: 
  Country: None (occurrence: None)
  Receive Date: 20080711
  Receipt Date: 20080711
  Transmission Date: 20090109
  Serious: Yes (Disabling)
  Sender: FDA-Public Use
  Company Number: None

PATIENT
  Sex: Female
  Weight: 40.8237 kg

DRUGS (1)
  1. BONIVA [Suspect]
     Indication: BONE DISORDER
     Dosage: 1 PILL ONCE TOOK A MONTHLY 5 PILLS

REACTIONS (3)
  - EAR PAIN [None]
  - PAIN IN EXTREMITY [None]
  - TOOTHACHE [None]
